FAERS Safety Report 8211436-5 (Version None)
Quarter: 2012Q1

REPORT INFORMATION
  Report Type: 
  Country: None (occurrence: None)
  Receive Date: 20120315
  Receipt Date: 20120306
  Transmission Date: 20120608
  Serious: Yes (Other)
  Sender: FDA-Public Use
  Company Number: JP-SANOFI-AVENTIS-2012SA015804

PATIENT

DRUGS (1)
  1. ALLEGRA [Suspect]
     Dosage: FORM-INTERNAL USE
     Route: 065

REACTIONS (1)
  - RENAL IMPAIRMENT [None]
